FAERS Safety Report 21118677 (Version 1)
Quarter: 2022Q3

REPORT INFORMATION
  Report Type: Spontaneous
  Country: US (occurrence: US)
  Receive Date: 20220722
  Receipt Date: 20220722
  Transmission Date: 20221027
  Serious: No
  Sender: FDA-Public Use
  Company Number: US-BRISTOL-MYERS SQUIBB COMPANY-2022-067750

PATIENT
  Age: 82 Year
  Sex: Female
  Weight: 65.31 kg

DRUGS (1)
  1. ELIQUIS [Suspect]
     Active Substance: APIXABAN
     Indication: Cerebrovascular accident prophylaxis
     Dosage: DOSE : ONE
     Route: 048
     Dates: start: 202112

REACTIONS (2)
  - Contusion [Unknown]
  - Petechiae [Unknown]

NARRATIVE: CASE EVENT DATE: 20220401
